FAERS Safety Report 4566642-8 (Version None)
Quarter: 2005Q1

REPORT INFORMATION
  Report Type: 
  Country: None (occurrence: None)
  Receive Date: 20050201
  Receipt Date: 20030605
  Transmission Date: 20050727
  Serious: Yes (Hospitalization, Other)
  Sender: FDA-Public Use
  Company Number: US-MERCK-0306USA00780

PATIENT
  Sex: Male

DRUGS (16)
  1. VIOXX [Suspect]
     Indication: ARTHRITIS
     Route: 048
     Dates: start: 20000101
  2. VIOXX [Suspect]
     Route: 048
     Dates: start: 20040514
  3. PREVACID [Concomitant]
     Indication: GASTROOESOPHAGEAL REFLUX DISEASE
     Route: 065
  4. AMITRIPTYLINE HYDROCHLORIDE [Concomitant]
     Route: 048
  5. ATENOLOL [Concomitant]
     Route: 048
  6. ATENOLOL [Concomitant]
     Route: 048
  7. NITROQUICK [Concomitant]
     Route: 060
  8. ASPIRIN [Concomitant]
     Route: 065
  9. LIPITOR [Concomitant]
     Route: 048
  10. ZANTAC [Concomitant]
     Route: 048
  11. PLAVIX [Concomitant]
     Route: 065
     Dates: start: 20010416
  12. AMARYL [Concomitant]
     Route: 065
  13. BAYCOL [Concomitant]
     Route: 065
  14. PRAVACHOL [Concomitant]
     Route: 065
  15. AMBIEN [Concomitant]
     Route: 065
  16. ACETAMINOPHEN AND HYDROCODONE BITARTRATE [Concomitant]
     Route: 065

REACTIONS (25)
  - ADVERSE EVENT [None]
  - ANAEMIA [None]
  - ANGINA PECTORIS [None]
  - ARTHRALGIA [None]
  - BLOOD PRESSURE INCREASED [None]
  - BUNDLE BRANCH BLOCK LEFT [None]
  - CAROTID ARTERY STENOSIS [None]
  - CHEST PAIN [None]
  - COLON CANCER [None]
  - CONVULSION [None]
  - CORONARY ARTERY DISEASE [None]
  - DIVERTICULUM [None]
  - DYSPHAGIA [None]
  - DYSPNOEA [None]
  - HIATUS HERNIA [None]
  - LIMB DISCOMFORT [None]
  - LOSS OF CONSCIOUSNESS [None]
  - OESOPHAGITIS [None]
  - POLYP [None]
  - POST PROCEDURAL HAEMATOMA [None]
  - PROSTATITIS [None]
  - RENAL CYST [None]
  - RETROGRADE EJACULATION [None]
  - TINNITUS [None]
  - URINARY RETENTION [None]
